FAERS Safety Report 13539162 (Version 4)
Quarter: 2018Q2

REPORT INFORMATION
  Report Type: Other
  Country: IT (occurrence: IT)
  Receive Date: 20170512
  Receipt Date: 20180422
  Transmission Date: 20180711
  Serious: Yes (Hospitalization, Other)
  Sender: FDA-Public Use
  Company Number: IT-APOTEX-2017AP011956

PATIENT
  Age: 56 Year
  Sex: Male

DRUGS (1)
  1. ZOLPIDEM DOC GENERICI [Suspect]
     Active Substance: ZOLPIDEM TARTRATE
     Indication: INTENTIONAL SELF-INJURY
     Dosage: 300 MG, TOTAL
     Route: 048

REACTIONS (3)
  - Intentional self-injury [Unknown]
  - Sedation [Unknown]
  - Drug abuse [Unknown]

NARRATIVE: CASE EVENT DATE: 20170403
